FAERS Safety Report 9017337 (Version 2)
Quarter: 2013Q1

REPORT INFORMATION
  Report Type: Spontaneous
  Country: US (occurrence: US)
  Receive Date: 20130117
  Receipt Date: 20130206
  Transmission Date: 20140127
  Serious: No
  Sender: FDA-Public Use
  Company Number: US-PFIZER INC-2013018140

PATIENT
  Age: 77 Year
  Sex: Female
  Weight: 77.09 kg

DRUGS (6)
  1. MEDROXYPROGESTERONE ACETATE [Suspect]
     Dosage: UNK
  2. OXYCODONE HYDROCHLORIDE [Suspect]
     Dosage: UNK, AS NEEDED (PRN)
  3. AXID [Suspect]
     Dosage: UNK
  4. DIATRIZOATE SODIUM [Suspect]
     Dosage: UNK
  5. IODINE [Suspect]
     Dosage: UNK
  6. LORTAB [Suspect]
     Dosage: UNK

REACTIONS (1)
  - Drug hypersensitivity [Unknown]
